FAERS Safety Report 6709087-4 (Version None)
Quarter: 2010Q2

REPORT INFORMATION
  Report Type: 
  Country: None (occurrence: None)
  Receive Date: 20100503
  Receipt Date: 20100503
  Transmission Date: 20101027
  Serious: No
  Sender: FDA-Public Use
  Company Number: None

PATIENT
  Age: 49 Year
  Sex: Male

DRUGS (1)
  1. ARGATROBAN [Suspect]
     Indication: VASCULAR OPERATION
     Dosage: 18 MG PER HOUR IV
     Route: 042
     Dates: start: 20100326

REACTIONS (3)
  - GASTROINTESTINAL HAEMORRHAGE [None]
  - INCISION SITE HAEMORRHAGE [None]
  - STRESS ULCER [None]
